FAERS Safety Report 7958145-5 (Version None)
Quarter: 2011Q4

REPORT INFORMATION
  Report Type: 
  Country: None (occurrence: None)
  Receive Date: 20111205
  Receipt Date: 20111128
  Transmission Date: 20120403
  Serious: Yes (Hospitalization)
  Sender: FDA-Public Use
  Company Number: US-GENZYME-THYM-1001559

PATIENT
  Sex: Male
  Weight: 84 kg

DRUGS (42)
  1. THYMOGLOBULIN [Suspect]
     Dosage: 150 MG, UNK
     Dates: start: 20100612, end: 20100612
  2. ACETAMINOPHEN [Concomitant]
     Indication: PYREXIA
  3. CLONIDINE HYDROCHLORIDE [Concomitant]
     Indication: BLOOD PRESSURE SYSTOLIC
     Dosage: 0.1 MG, UNK
     Dates: start: 20100608, end: 20100625
  4. FUROSEMIDE [Concomitant]
     Indication: OEDEMA
     Dosage: 10 MG, ONCE
     Dates: start: 20100608, end: 20100608
  5. MYCOPHENOLATE MOFETIL [Concomitant]
     Dosage: 500 MG, BID
     Dates: start: 20100609, end: 20100611
  6. OXYCODONE HCL [Concomitant]
     Indication: PAIN
     Dosage: 5 MG, UNK
     Dates: start: 20100615, end: 20100621
  7. RANITIDINE HYDROCHLORIDE [Concomitant]
     Indication: GASTROOESOPHAGEAL REFLUX DISEASE
     Dosage: 50 MG, QDX3
     Dates: start: 20100608, end: 20100609
  8. TACROLIMUS [Concomitant]
     Dosage: 3 MG, BID
     Dates: start: 20100616, end: 20100617
  9. FLUTICASONE PROPIONATE [Concomitant]
     Indication: BRONCHOSPASM
     Dosage: 1 DF, BID
     Dates: start: 20100611, end: 20100625
  10. METHYLPREDNISOLONE [Concomitant]
     Indication: IMMUNOSUPPRESSION
     Dosage: 308 MG, ONCE
     Dates: start: 20100608, end: 20100608
  11. METHYLPREDNISOLONE [Concomitant]
     Dosage: 50 MG, ONCE
     Dates: start: 20100609, end: 20100621
  12. TACROLIMUS [Concomitant]
     Indication: IMMUNOSUPPRESSION
     Dosage: 2 MG, BID
     Dates: start: 20100614, end: 20100616
  13. THYMOGLOBULIN [Suspect]
     Indication: PROPHYLAXIS AGAINST TRANSPLANT REJECTION
     Dosage: 154 MG, UNK
     Route: 042
     Dates: start: 20100608, end: 20100608
  14. ONDANSETRON HYDROCHLORIDE [Concomitant]
     Indication: NAUSEA
     Dosage: 4 MG, UNK
     Dates: start: 20100608, end: 20100625
  15. PANTOPRAZOLE SODIUM [Concomitant]
     Indication: OESOPHAGITIS
  16. ZOSYN [Concomitant]
     Indication: ANTI-INFECTIVE THERAPY
     Dosage: 3.375 G, QID
     Dates: start: 20100615, end: 20100616
  17. TOLTERODINE TARTRATE [Concomitant]
     Indication: HYPERTONIC BLADDER
     Dosage: 4 MG, QD
     Dates: start: 20100610, end: 20100611
  18. MAGNESIUM SULFATE [Concomitant]
     Indication: MINERAL SUPPLEMENTATION
     Dosage: 2 G, UNK
     Dates: start: 20100609, end: 20100609
  19. BACTRIM [Concomitant]
     Indication: ANTI-INFECTIVE THERAPY
     Dosage: 1 DF, BID
     Route: 048
     Dates: start: 20100614, end: 20100625
  20. CEFAZOLIN SODIUM [Concomitant]
     Indication: ANTI-INFECTIVE THERAPY
     Dosage: 2000 MG, ONCE
     Dates: start: 20100608, end: 20100609
  21. HYDROMORPHONE HCL [Concomitant]
     Indication: PAIN
     Dosage: 1 MG, UNK
     Dates: start: 20100608, end: 20100618
  22. INSULIN [Concomitant]
     Indication: HYPERGLYCAEMIA
     Dosage: 100 U, ONCE
     Dates: start: 20100608, end: 20100608
  23. ONDANSETRON HYDROCHLORIDE [Concomitant]
     Indication: VOMITING
  24. PANTOPRAZOLE SODIUM [Concomitant]
     Indication: GASTROOESOPHAGEAL REFLUX DISEASE
     Dosage: 40 MG, QD
     Dates: start: 20100609, end: 20100609
  25. TAMSULOSIN HYDROCHLORIDE [Concomitant]
     Indication: BENIGN PROSTATIC HYPERPLASIA
     Dosage: 0.4 MG, UNK
     Dates: start: 20100610, end: 20100625
  26. VALGANCICLOVIR HYDROCHLORIDE [Concomitant]
     Indication: CYTOMEGALOVIRUS INFECTION
     Dosage: 900 MG, QD
     Dates: start: 20100612, end: 20100625
  27. ACETAMINOPHEN [Concomitant]
     Indication: PREMEDICATION
     Dosage: 650 MG, UNK
     Dates: start: 20100614, end: 20100723
  28. DIPHENHYDRAMINE HCL [Concomitant]
     Indication: PREMEDICATION
     Dosage: 50 MG, UNK
     Dates: start: 20100608, end: 20100723
  29. MYCOPHENOLATE MOFETIL [Concomitant]
     Indication: IMMUNOSUPPRESSION
     Dosage: 1000 MG, BID
     Dates: start: 20100611, end: 20100625
  30. OXYCODONE HCL [Concomitant]
     Indication: PAIN
     Dosage: 1 DF, UNK
     Route: 048
     Dates: start: 20100613, end: 20100615
  31. OXYCODONE HCL [Concomitant]
     Indication: PYREXIA
  32. PHENYLEPHRINE HYDROCHLORIDE [Concomitant]
     Indication: HYPOTENSION
     Dosage: 20 MG, UNK
     Route: 042
     Dates: start: 20100608, end: 20100608
  33. PREDNISONE TAB [Concomitant]
     Indication: IMMUNOSUPPRESSION
     Dosage: 20 MG, QD
     Dates: start: 20100614, end: 20100621
  34. THYMOGLOBULIN [Suspect]
     Dosage: 150 MG, UNK
     Dates: start: 20100610, end: 20100610
  35. THYMOGLOBULIN [Suspect]
     Dosage: 150 MG, UNK
     Dates: start: 20100614, end: 20100614
  36. INSULIN ASPART [Concomitant]
     Indication: HYPERGLYCAEMIA
     Dosage: 1 U, PRN
     Dates: start: 20100612, end: 20100622
  37. LANSOPRAZOLE [Concomitant]
     Indication: GASTROOESOPHAGEAL REFLUX DISEASE
     Dosage: 30 MG, QD
     Dates: start: 20100609, end: 20100625
  38. POTASSIUM CHLORIDE [Concomitant]
     Indication: MINERAL SUPPLEMENTATION
     Dosage: 40 MEQ, UNK
     Dates: start: 20100616, end: 20100618
  39. VALGANCICLOVIR HYDROCHLORIDE [Concomitant]
     Dosage: 450 MG, QD
     Dates: start: 20100609, end: 20100611
  40. METHYLPREDNISOLONE [Concomitant]
     Dosage: 1000 MG, ONCE
     Dates: start: 20100613, end: 20100613
  41. PHYTONADIONE [Concomitant]
     Indication: ANTICOAGULANT THERAPY
     Dosage: 10 MG, QD
     Dates: start: 20100608, end: 20100610
  42. VANCOMYCIN HYCHLORIDE [Concomitant]
     Indication: ANTI-INFECTIVE THERAPY
     Dosage: 1000 MG, ONCE
     Dates: start: 20100615, end: 20100615

REACTIONS (18)
  - ASCITES [None]
  - CONSTIPATION [None]
  - PYREXIA [None]
  - MUSCLE SPASMS [None]
  - CLOSTRIDIUM DIFFICILE COLITIS [None]
  - PRURITUS [None]
  - TACHYCARDIA [None]
  - SERUM SICKNESS [None]
  - BONE PAIN [None]
  - OXYGEN SATURATION DECREASED [None]
  - TREMOR [None]
  - WHEEZING [None]
  - HEPATIC ENZYME INCREASED [None]
  - ABDOMINAL PAIN [None]
  - ANXIETY [None]
  - HERPES ZOSTER [None]
  - POST PROCEDURAL BILE LEAK [None]
  - ARTHRALGIA [None]
